FAERS Safety Report 4710124-7 (Version None)
Quarter: 2005Q3

REPORT INFORMATION
  Report Type: 
  Country: None (occurrence: None)
  Receive Date: 20050708
  Receipt Date: 20050708
  Transmission Date: 20060218
  Serious: No
  Sender: FDA-Public Use
  Company Number: None

PATIENT
  Age: 80 Year
  Sex: Female
  Weight: 73.5 kg

DRUGS (10)
  1. CEFAZOLIN [Suspect]
     Dosage: Q8H IV
     Route: 042
     Dates: start: 20050526, end: 20050528
  2. LIPITOR [Concomitant]
  3. TRINSICON [Concomitant]
  4. BENADRYL [Concomitant]
  5. COLACE [Concomitant]
  6. LOVENOX [Concomitant]
  7. PREVACID [Concomitant]
  8. CLARITIN [Concomitant]
  9. MULTI-VITAMIN [Concomitant]
  10. REGLAN [Concomitant]

REACTIONS (1)
  - RASH [None]
